FAERS Safety Report 4744412-5 (Version None)
Quarter: 2005Q3

REPORT INFORMATION
  Report Type: 
  Country: None (occurrence: None)
  Receive Date: 20050809
  Receipt Date: 20050729
  Transmission Date: 20060218
  Serious: Yes (Other)
  Sender: FDA-Public Use
  Company Number: 2005109084

PATIENT
  Sex: Female
  Weight: 62.1428 kg

DRUGS (4)
  1. XALATAN [Suspect]
     Indication: GLAUCOMA
     Dosage: 3 MCG (1.5 MCG, QHS INTERVAL:  AT BEDTIME), OPHTHALMIC
     Route: 047
     Dates: start: 19960101
  2. TRANXENE [Concomitant]
  3. BETIMOL (TIMOLOL) [Concomitant]
  4. VITAMINS (VITAMINS) [Concomitant]

REACTIONS (5)
  - EYE HAEMORRHAGE [None]
  - HYPERTENSION [None]
  - INCORRECT DOSE ADMINISTERED [None]
  - INTRAOCULAR PRESSURE INCREASED [None]
  - PHARMACEUTICAL PRODUCT COMPLAINT [None]
